FAERS Safety Report 7439957-3 (Version None)
Quarter: 2011Q2

REPORT INFORMATION
  Report Type: 
  Country: None (occurrence: None)
  Receive Date: 20110427
  Receipt Date: 20110413
  Transmission Date: 20111010
  Serious: Yes (Other)
  Sender: FDA-Public Use
  Company Number: PHEH2010US03500

PATIENT
  Sex: Female

DRUGS (10)
  1. LISINOPRIL [Concomitant]
  2. MAXZIDE [Concomitant]
  3. IMITREX ^CERENEX^ [Concomitant]
  4. PREMARIN [Concomitant]
  5. COREG [Concomitant]
  6. ZELNORM [Suspect]
     Dosage: UNK
  7. LORAZEPAM [Concomitant]
  8. LORTAB [Concomitant]
  9. PRISTIQ [Concomitant]
  10. PREVACID [Concomitant]

REACTIONS (39)
  - IRRITABLE BOWEL SYNDROME [None]
  - INTERVERTEBRAL DISC DEGENERATION [None]
  - NAUSEA [None]
  - CARDIAC ASSISTANCE DEVICE USER [None]
  - PEPTIC ULCER [None]
  - CARDIOMEGALY [None]
  - PLEURAL EFFUSION [None]
  - DYSPNOEA [None]
  - IMPAIRED GASTRIC EMPTYING [None]
  - BILIARY TRACT DISORDER [None]
  - CARDIOMYOPATHY [None]
  - AORTIC VALVE INCOMPETENCE [None]
  - UPPER-AIRWAY COUGH SYNDROME [None]
  - OSTEOARTHRITIS [None]
  - PRURITUS [None]
  - NON-CARDIAC CHEST PAIN [None]
  - COSTOCHONDRITIS [None]
  - ARTHRALGIA [None]
  - OEDEMA PERIPHERAL [None]
  - OSTEOPENIA [None]
  - TRICUSPID VALVE INCOMPETENCE [None]
  - DIASTOLIC DYSFUNCTION [None]
  - DIARRHOEA [None]
  - MIGRAINE [None]
  - WEIGHT INCREASED [None]
  - BACK PAIN [None]
  - LEFT VENTRICULAR HYPERTROPHY [None]
  - ABDOMINAL PAIN [None]
  - ASCITES [None]
  - SPINAL COLUMN STENOSIS [None]
  - HERPES ZOSTER [None]
  - INJURY [None]
  - PULMONARY HYPERTENSION [None]
  - MITRAL VALVE INCOMPETENCE [None]
  - CHEST PAIN [None]
  - HYPERTENSION [None]
  - DYSLIPIDAEMIA [None]
  - GASTROOESOPHAGEAL REFLUX DISEASE [None]
  - VOMITING [None]
